FAERS Safety Report 7916362-4 (Version None)
Quarter: 2011Q4

REPORT INFORMATION
  Report Type: 
  Country: None (occurrence: None)
  Receive Date: 20111116
  Receipt Date: 20111109
  Transmission Date: 20120403
  Serious: No
  Sender: FDA-Public Use
  Company Number: US-BIOGENIDEC-2011BI043146

PATIENT
  Age: 40 Year
  Sex: Female

DRUGS (1)
  1. TYSABRI [Suspect]
     Indication: MULTIPLE SCLEROSIS
     Route: 042
     Dates: start: 20100525, end: 20110829

REACTIONS (5)
  - GAIT DISTURBANCE [None]
  - PERIORBITAL HAEMATOMA [None]
  - FALL [None]
  - BALANCE DISORDER [None]
  - LIMB INJURY [None]
